FAERS Safety Report 5386724-0 (Version None)
Quarter: 2007Q3

REPORT INFORMATION
  Report Type: 
  Country: None (occurrence: None)
  Receive Date: 20070713
  Receipt Date: 20070704
  Transmission Date: 20080115
  Serious: Yes (Hospitalization)
  Sender: FDA-Public Use
  Company Number: JP-ASTRAZENECA-2007AP02508

PATIENT
  Age: 26644 Day
  Sex: Female
  Weight: 41 kg

DRUGS (6)
  1. XYLOCAINE [Suspect]
     Indication: LOCAL ANAESTHESIA
     Dates: start: 20070409, end: 20070409
  2. XYLOCAINE SOLUTION FOR OPTHALMAOLOGY [Suspect]
     Indication: LOCAL ANAESTHESIA
     Route: 047
     Dates: start: 20070409, end: 20070409
  3. OPEGAN HI [Concomitant]
     Indication: SURGERY
     Dates: start: 20070409, end: 20070409
  4. OPELEAD [Concomitant]
     Indication: SURGERY
     Dates: start: 20070409, end: 20070409
  5. VISCOAT [Concomitant]
     Indication: SURGERY
     Dates: start: 20070409, end: 20070409
  6. LEVOFLOXACIN [Concomitant]
     Indication: SURGERY
     Dates: start: 20070409, end: 20070409

REACTIONS (2)
  - CORNEAL OEDEMA [None]
  - INTRAOCULAR PRESSURE INCREASED [None]
